FAERS Safety Report 9204295 (Version 1)
Quarter: 2013Q2

REPORT INFORMATION
  Report Type: Spontaneous
  Country: US (occurrence: US)
  Receive Date: 20130402
  Receipt Date: 20130402
  Transmission Date: 20140414
  Serious: No
  Sender: FDA-Public Use
  Company Number: US-009507513-1304USA000865

PATIENT
  Sex: Male

DRUGS (1)
  1. DR. SCHOLL^S INGROWN TOENAIL PAIN RELIEVER [Suspect]
     Indication: DISCOMFORT
     Dosage: UNK, UNKNOWN
     Route: 061

REACTIONS (2)
  - Condition aggravated [Unknown]
  - Drug ineffective [Unknown]
